FAERS Safety Report 14289345 (Version 1)
Quarter: 2017Q4

REPORT INFORMATION
  Report Type: Spontaneous
  Country: NL (occurrence: NL)
  Receive Date: 20171214
  Receipt Date: 20171214
  Transmission Date: 20180321
  Serious: Yes (Hospitalization)
  Sender: FDA-Public Use
  Company Number: NL-NOVOPROD-576522

PATIENT
  Age: 30 Year
  Sex: Female

DRUGS (1)
  1. LEVEMIR [Suspect]
     Active Substance: INSULIN DETEMIR
     Indication: GESTATIONAL DIABETES
     Dosage: 14 IU, QD
     Route: 058
     Dates: start: 20170717

REACTIONS (5)
  - Blood glucose increased [Unknown]
  - Vaginal haemorrhage [Unknown]
  - Haemorrhage in pregnancy [Not Recovered/Not Resolved]
  - Exposure during pregnancy [Unknown]
  - Treatment noncompliance [Unknown]

NARRATIVE: CASE EVENT DATE: 20170717
